FAERS Safety Report 12561023 (Version 2)
Quarter: 2016Q4

REPORT INFORMATION
  Report Type: Spontaneous
  Country: US (occurrence: US)
  Receive Date: 20160715
  Receipt Date: 20161017
  Transmission Date: 20170207
  Serious: No
  Sender: FDA-Public Use
  Company Number: US-GALDERMA-US16004172

PATIENT
  Age: 67 Year
  Sex: Male

DRUGS (10)
  1. MIRVASO [Concomitant]
     Active Substance: BRIMONIDINE TARTRATE
     Indication: ROSACEA
     Dosage: 0.33%
     Route: 061
  2. LIDEX [Concomitant]
     Active Substance: FLUOCINONIDE
     Route: 061
  3. ELOCON [Concomitant]
     Active Substance: MOMETASONE FUROATE
     Dosage: 0.1%
     Route: 061
  4. CETAPHIL MOISTURIZER [Concomitant]
     Route: 061
  5. SOOLANTRA [Suspect]
     Active Substance: IVERMECTIN
     Dosage: 1%
     Route: 061
     Dates: start: 20160407, end: 20160407
  6. UNKNOWN SPECIAL WASH [Concomitant]
     Indication: THERAPEUTIC SKIN CARE TOPICAL
     Route: 061
  7. EXFORGE [Concomitant]
     Active Substance: AMLODIPINE BESYLATE\VALSARTAN
     Indication: HYPERTENSION
     Dosage: 10-320 MG
     Route: 048
  8. LATANOPROST. [Suspect]
     Active Substance: LATANOPROST
     Dosage: 005%
     Route: 047
  9. ASPIRIN. [Concomitant]
     Active Substance: ASPIRIN
     Indication: PRODUCT USED FOR UNKNOWN INDICATION
     Dosage: 81 MG
     Route: 048
  10. SOOLANTRA [Suspect]
     Active Substance: IVERMECTIN
     Indication: ROSACEA
     Dosage: 1%
     Route: 061
     Dates: start: 20160107, end: 20160108

REACTIONS (5)
  - Inflammation [Recovered/Resolved]
  - Skin irritation [Recovered/Resolved]
  - Erythema [Recovered/Resolved]
  - Rosacea [Recovered/Resolved]
  - Skin reaction [Recovered/Resolved]

NARRATIVE: CASE EVENT DATE: 20160107
